FAERS Safety Report 5965950-3 (Version None)
Quarter: 2008Q4

REPORT INFORMATION
  Report Type: 
  Country: None (occurrence: None)
  Receive Date: 20081125
  Receipt Date: 20081112
  Transmission Date: 20090506
  Serious: Yes (Hospitalization)
  Sender: FDA-Public Use
  Company Number: BR-ELI_LILLY_AND_COMPANY-BR200811002758

PATIENT
  Age: 93 Year
  Sex: Female
  Weight: 70 kg

DRUGS (6)
  1. FORTEO [Suspect]
     Indication: OSTEOPOROSIS
     Dosage: UNK, UNKNOWN
     Route: 065
  2. AAS [Concomitant]
     Dosage: UNK, DAILY (1/D)
  3. HYDROCHLOROTHIAZIDE [Concomitant]
     Dosage: 25 MG, DAILY (1/D)
  4. ALOES [Concomitant]
  5. HALDOL [Concomitant]
     Dosage: 3 GTT, DAILY (1/D)
  6. FENERGAN [Concomitant]
     Dosage: UNK, DAILY (1/D)

REACTIONS (5)
  - CEREBRAL ISCHAEMIA [None]
  - DYSPHAGIA [None]
  - HYPOAESTHESIA [None]
  - SPEECH DISORDER [None]
  - TONGUE DISORDER [None]
